FAERS Safety Report 5019112-7 (Version None)
Quarter: 2006Q2

REPORT INFORMATION
  Report Type: 
  Country: None (occurrence: None)
  Receive Date: 20060606
  Receipt Date: 20060127
  Transmission Date: 20061013
  Serious: Yes (Life-Threatening)
  Sender: FDA-Public Use
  Company Number: PR-MERCK-0601USA03275

PATIENT
  Age: 6 Year
  Sex: Male
  Weight: 20 kg

DRUGS (2)
  1. SINGULAIR [Suspect]
     Indication: HYPERSENSITIVITY
     Route: 048
  2. NASONEX [Concomitant]
     Indication: HYPERSENSITIVITY
     Route: 065

REACTIONS (6)
  - ANOREXIA [None]
  - DEPRESSION [None]
  - IRRITABILITY [None]
  - SOMNOLENCE [None]
  - SUICIDAL IDEATION [None]
  - TEARFULNESS [None]
